FAERS Safety Report 14688427 (Version 1)
Quarter: 2018Q1

REPORT INFORMATION
  Report Type: Report from Study
  Country: IE (occurrence: IE)
  Receive Date: 20180328
  Receipt Date: 20180328
  Transmission Date: 20180509
  Serious: Yes (Other)
  Sender: FDA-Public Use
  Company Number: IE-FRESENIUS KABI-FK201803507

PATIENT
  Age: 46 Year
  Sex: Male

DRUGS (7)
  1. SMOFLIPID [Suspect]
     Active Substance: FISH OIL\MEDIUM-CHAIN TRIGLYCERIDES\OLIVE OIL\SOYBEAN OIL
     Indication: SHORT-BOWEL SYNDROME
     Route: 041
     Dates: start: 20180123
  2. AMINOVEN 15% [Suspect]
     Active Substance: AMINO ACIDS
     Indication: SHORT-BOWEL SYNDROME
     Route: 041
     Dates: start: 20180123
  3. VITALIPID ADULT [Suspect]
     Active Substance: ERGOCALCIFEROL\PHYTONADIONE\RETINOL\TOCOPHEROL
     Indication: SHORT-BOWEL SYNDROME
     Route: 041
     Dates: start: 20180123
  4. WATER FOR INJECTIONS [Suspect]
     Active Substance: WATER
     Indication: SHORT-BOWEL SYNDROME
     Route: 041
     Dates: start: 20180123
  5. ADDAMEL N [Suspect]
     Active Substance: CHROMIC CHLORIDE\CUPROUS CHLORIDE\FERRIC CHLORIDE\MANGANESE CHLORIDE\POTASSIUM IODIDE\SODIUM FLUORIDE\SODIUM MOLYBDATE DIHYDRATE\SODIUM SELENITE\ZINC CHLORIDE
     Indication: SHORT-BOWEL SYNDROME
     Route: 041
     Dates: start: 20180123
  6. GLUCOSE 70% [Suspect]
     Active Substance: DEXTROSE
     Indication: SHORT-BOWEL SYNDROME
     Route: 041
     Dates: start: 20180123
  7. SOLUVIT N [Suspect]
     Active Substance: VITAMINS
     Indication: SHORT-BOWEL SYNDROME
     Route: 041
     Dates: start: 20180123

REACTIONS (4)
  - Muscle spasms [Not Recovered/Not Resolved]
  - Poor quality sleep [Not Recovered/Not Resolved]
  - Paraesthesia [Not Recovered/Not Resolved]
  - Renal function test abnormal [Not Recovered/Not Resolved]

NARRATIVE: CASE EVENT DATE: 201801
